FAERS Safety Report 10541450 (Version 1)
Quarter: 2014Q4

REPORT INFORMATION
  Report Type: Spontaneous
  Country: FR (occurrence: FR)
  Receive Date: 20141024
  Receipt Date: 20141024
  Transmission Date: 20150529
  Serious: Yes (Hospitalization)
  Sender: FDA-Public Use
  Company Number: FR-BRISTOL-MYERS SQUIBB COMPANY-21502851

PATIENT
  Age: 58 Year
  Sex: Female

DRUGS (6)
  1. AZACTAM [Suspect]
     Active Substance: AZTREONAM
     Indication: URINARY TRACT INFECTION
     Dates: start: 20140912
  2. TOPALGIC LP [Suspect]
     Active Substance: TRAMADOL
     Dosage: ONGOING
     Route: 048
     Dates: start: 20140912
  3. PYOSTACINE [Concomitant]
     Active Substance: PRISTINAMYCIN
     Indication: DYSURIA
     Dates: start: 201408, end: 201408
  4. AMIKACIN SULFATE. [Suspect]
     Active Substance: AMIKACIN SULFATE
     Indication: URINARY TRACT INFECTION
     Dates: start: 20140912, end: 20140915
  5. OFLOCET [Concomitant]
     Active Substance: OFLOXACIN
     Indication: URINARY TRACT INFECTION
  6. INSULIN [Suspect]
     Active Substance: INSULIN NOS
     Dosage: ONGOING
     Dates: start: 20140912

REACTIONS (2)
  - Rash erythematous [Recovering/Resolving]
  - Hepatocellular injury [Recovering/Resolving]

NARRATIVE: CASE EVENT DATE: 20140915
